FAERS Safety Report 5960440-6 (Version None)
Quarter: 2008Q4

REPORT INFORMATION
  Report Type: 
  Country: None (occurrence: None)
  Receive Date: 20081120
  Receipt Date: 20081111
  Transmission Date: 20090506
  Serious: No
  Sender: FDA-Public Use
  Company Number: US-B.I. PHARMACEUTICALS,INC./RIDGEFIELD-2008-BP-04885BP

PATIENT
  Sex: Female

DRUGS (12)
  1. SPIRIVA [Suspect]
     Indication: CHRONIC OBSTRUCTIVE PULMONARY DISEASE
     Dosage: 18MCG
     Dates: start: 20070101
  2. SPIRIVA [Suspect]
     Indication: BRONCHITIS CHRONIC
  3. SPIRIVA [Suspect]
     Indication: EMPHYSEMA
  4. SPIRIVA [Suspect]
     Indication: DYSPNOEA
  5. ADVAIR DISKUS 100/50 [Concomitant]
  6. ALBUTEROL + IPRATROPIUM BROMIDE [Concomitant]
  7. COMBIVENT [Concomitant]
  8. GUAIFENESIN [Concomitant]
  9. LISINOPRIL [Concomitant]
  10. RANITIDINE HCL [Concomitant]
  11. NASONEX NEBULIZER [Concomitant]
  12. ALPRAZOLAM [Concomitant]
     Indication: ANXIETY

REACTIONS (1)
  - EYE PAIN [None]
